FAERS Safety Report 15965009 (Version 5)
Quarter: 2021Q1

REPORT INFORMATION
  Report Type: Report from Study
  Country: MX (occurrence: MX)
  Receive Date: 20190215
  Receipt Date: 20210113
  Transmission Date: 20210419
  Serious: Yes (Other)
  Sender: FDA-Public Use
  Company Number: MX-EMD SERONO-9071751

PATIENT
  Age: 15 Year
  Sex: Male

DRUGS (17)
  1. SAIZEN [Suspect]
     Active Substance: SOMATROPIN
     Dosage: INCREASE OF DOSE OF 0.03 MG EVERY 5 DAYS
     Route: 058
     Dates: start: 2019
  2. SAIZEN [Suspect]
     Active Substance: SOMATROPIN
     Route: 058
     Dates: start: 20190429
  3. EUTHYROX [Concomitant]
     Active Substance: LEVOTHYROXINE SODIUM
     Dosage: FROM MONDAY TO WEDNESDAY
  4. LEVOCETIRIZINE [Concomitant]
     Active Substance: LEVOCETIRIZINE
     Indication: PRODUCT USED FOR UNKNOWN INDICATION
  5. NORFLOXACIN [Concomitant]
     Active Substance: NORFLOXACIN
     Indication: PYREXIA
     Dosage: FOR 10 DAYS
  6. SAIZEN [Suspect]
     Active Substance: SOMATROPIN
     Route: 058
     Dates: start: 20190429
  7. SAIZEN [Suspect]
     Active Substance: SOMATROPIN
     Route: 058
     Dates: start: 2019
  8. EUTHYROX [Concomitant]
     Active Substance: LEVOTHYROXINE SODIUM
     Dosage: MONDAY TO WEDNESDAY
  9. SAIZEN [Suspect]
     Active Substance: SOMATROPIN
     Dosage: 4UI
     Route: 058
     Dates: start: 201902
  10. SAIZEN [Suspect]
     Active Substance: SOMATROPIN
     Route: 058
     Dates: start: 20190212
  11. EUTHYROX [Concomitant]
     Active Substance: LEVOTHYROXINE SODIUM
     Indication: PRIMARY HYPOTHYROIDISM
  12. EUTHYROX [Concomitant]
     Active Substance: LEVOTHYROXINE SODIUM
     Dosage: FROM THURSDAY TO SUNDAY
  13. SAIZEN [Suspect]
     Active Substance: SOMATROPIN
     Route: 058
     Dates: start: 20190208
  14. SAIZEN [Suspect]
     Active Substance: SOMATROPIN
     Indication: GROWTH RETARDATION
     Dosage: 2 UI
     Route: 058
     Dates: start: 20190120
  15. SAIZEN [Suspect]
     Active Substance: SOMATROPIN
     Indication: GROWTH HORMONE DEFICIENCY
     Dosage: 3 UI
     Route: 058
     Dates: start: 201901
  16. EUTHYROX [Concomitant]
     Active Substance: LEVOTHYROXINE SODIUM
     Dosage: FROM THURSDAY  TO SUNDAY
  17. FLUTICASONE. [Concomitant]
     Active Substance: FLUTICASONE
     Indication: SINUSITIS

REACTIONS (9)
  - Depression [Unknown]
  - Cortisol decreased [Recovered/Resolved]
  - Photophobia [Recovered/Resolved]
  - Tachycardia [Unknown]
  - Drug administered in wrong device [Unknown]
  - Delayed puberty [Unknown]
  - Anxiety [Unknown]
  - Headache [Recovered/Resolved]
  - Blood thyroid stimulating hormone increased [Unknown]

NARRATIVE: CASE EVENT DATE: 20190120
